FAERS Safety Report 16069853 (Version 2)
Quarter: 2019Q2

REPORT INFORMATION
  Report Type: Spontaneous
  Country: US (occurrence: US)
  Receive Date: 20190314
  Receipt Date: 20190411
  Transmission Date: 20190711
  Serious: No
  Sender: FDA-Public Use
  Company Number: US-TEVA-2019-US-1016349

PATIENT
  Sex: Male

DRUGS (1)
  1. ZOLPIDEM TARTRATE 10 MG TEVA [Suspect]
     Active Substance: ZOLPIDEM TARTRATE

REACTIONS (2)
  - Insomnia [Unknown]
  - Drug ineffective [Unknown]
